FAERS Safety Report 5262539-9 (Version None)
Quarter: 2007Q1

REPORT INFORMATION
  Report Type: 
  Country: None (occurrence: None)
  Receive Date: 20070312
  Receipt Date: 20070301
  Transmission Date: 20070707
  Serious: Yes (Other)
  Sender: FDA-Public Use
  Company Number: US-PFIZER INC-2007017345

PATIENT
  Age: 8 Year
  Sex: Female

DRUGS (3)
  1. SOMATROPIN [Suspect]
     Indication: GROWTH HORMONE DEFICIENCY
     Dosage: TEXT:0.3 MG/KG/  0,3 MG/KG/WEEK
  2. SOMATROPIN [Suspect]
     Dosage: TEXT:0,15 MG/KG/WEEK
  3. SOMATROPIN [Suspect]
     Dosage: TEXT:0,3 MG/KG/WEEK

REACTIONS (1)
  - THYMUS ENLARGEMENT [None]
